FAERS Safety Report 20642195 (Version 2)
Quarter: 2022Q2

REPORT INFORMATION
  Report Type: Spontaneous
  Country: CN (occurrence: None)
  Receive Date: 20220328
  Receipt Date: 20220414
  Transmission Date: 20220721
  Serious: Yes (Hospitalization, Other)
  Sender: FDA-Public Use
  Company Number: 2022A119004

PATIENT
  Sex: Female
  Weight: 51 kg

DRUGS (1)
  1. IMFINZI [Suspect]
     Active Substance: DURVALUMAB
     Indication: Small cell lung cancer extensive stage
     Dosage: 1000/CYCLE1000.0MG EVERY CYCLE
     Route: 042
     Dates: start: 20210917, end: 20211124

REACTIONS (1)
  - Thrombosis [Recovering/Resolving]
